FAERS Safety Report 17167406 (Version 3)
Quarter: 2020Q1

REPORT INFORMATION
  Report Type: Spontaneous
  Country: JP (occurrence: JP)
  Receive Date: 20191217
  Receipt Date: 20200205
  Transmission Date: 20200409
  Serious: Yes (Other)
  Sender: FDA-Public Use
  Company Number: JP-ABBVIE-19K-087-3192569-00

PATIENT
  Age: 71 Year
  Sex: Female
  Weight: 51.4 kg

DRUGS (3)
  1. METHOTREXATE. [Concomitant]
     Active Substance: METHOTREXATE
     Indication: RHEUMATOID ARTHRITIS
  2. HUMIRA [Suspect]
     Active Substance: ADALIMUMAB
     Indication: RHEUMATOID ARTHRITIS
     Route: 058
     Dates: start: 201004, end: 20191107
  3. MIZORIBINE [Concomitant]
     Active Substance: MIZORIBINE
     Indication: RHEUMATOID ARTHRITIS

REACTIONS (2)
  - Retinal haemorrhage [Unknown]
  - Off label use [Unknown]

NARRATIVE: CASE EVENT DATE: 20191206
